FAERS Safety Report 6408610-7 (Version None)
Quarter: 2009Q4

REPORT INFORMATION
  Report Type: 
  Country: None (occurrence: None)
  Receive Date: 20091021
  Receipt Date: 20091013
  Transmission Date: 20100525
  Serious: Yes (Life-Threatening, Hospitalization)
  Sender: FDA-Public Use
  Company Number: FR-BAXTER-2009BH013124

PATIENT
  Age: 61 Year
  Sex: Male
  Weight: 86 kg

DRUGS (8)
  1. ALBUMIN (HUMAN) [Suspect]
     Indication: HYPOVOLAEMIC SHOCK
     Route: 042
     Dates: start: 20090811, end: 20090811
  2. ALBUMIN (HUMAN) [Suspect]
     Indication: HEPATORENAL SYNDROME
     Route: 042
     Dates: start: 20090811, end: 20090811
  3. ALBUMIN (HUMAN) [Suspect]
     Route: 042
     Dates: start: 20090726, end: 20090726
  4. ALBUMIN (HUMAN) [Suspect]
     Route: 042
     Dates: start: 20090726, end: 20090726
  5. ALBUMIN (HUMAN) [Suspect]
     Route: 042
     Dates: start: 20090722, end: 20090722
  6. ALBUMIN (HUMAN) [Suspect]
     Route: 042
     Dates: start: 20090722, end: 20090722
  7. ALBUMIN (HUMAN) [Suspect]
     Route: 042
     Dates: start: 20090720, end: 20090720
  8. ALBUMIN (HUMAN) [Suspect]
     Route: 042
     Dates: start: 20090720, end: 20090720

REACTIONS (3)
  - ANAPHYLACTIC SHOCK [None]
  - CARDIAC ARREST [None]
  - ERYTHEMA [None]
